FAERS Safety Report 5192746-5 (Version None)
Quarter: 2006Q4

REPORT INFORMATION
  Report Type: 
  Country: None (occurrence: None)
  Receive Date: 20061228
  Receipt Date: 20061219
  Transmission Date: 20070319
  Serious: Yes (Hospitalization, Disabling)
  Sender: FDA-Public Use
  Company Number: PHHO2006CL21444

PATIENT
  Age: 45 Year
  Sex: Female
  Weight: 68.5 kg

DRUGS (2)
  1. RAD [Suspect]
     Indication: RENAL TRANSPLANT
     Dosage: 0.75 MG, QD
     Route: 048
     Dates: start: 20061117, end: 20061216
  2. NEORAL [Suspect]
     Indication: RENAL TRANSPLANT
     Dosage: UNK, UNK
     Dates: start: 20061116, end: 20061116

REACTIONS (8)
  - DIALYSIS [None]
  - GRAFT DYSFUNCTION [None]
  - MACULOPATHY [None]
  - OLIGURIA [None]
  - RENAL PAPILLARY NECROSIS [None]
  - RENAL TUBULAR NECROSIS [None]
  - THERAPEUTIC AGENT TOXICITY [None]
  - VISION BLURRED [None]
